FAERS Safety Report 8436312-4 (Version None)
Quarter: 2012Q2

REPORT INFORMATION
  Report Type: 
  Country: None (occurrence: None)
  Receive Date: 20120614
  Receipt Date: 20120601
  Transmission Date: 20120825
  Serious: Yes (Hospitalization)
  Sender: FDA-Public Use
  Company Number: HU-ELI_LILLY_AND_COMPANY-HU201203002786

PATIENT
  Age: 30 Year
  Sex: Male

DRUGS (3)
  1. CLOZAPINE [Concomitant]
     Dosage: 300 MG, UNK
  2. OLANZAPINE [Suspect]
     Indication: SCHIZOPHRENIA, PARANOID TYPE
     Dosage: 300 MG, EVERY 2 WEEKS
     Route: 030
     Dates: start: 20120229
  3. CLONAZEPAM [Concomitant]
     Dosage: 0.5 MG, TID

REACTIONS (7)
  - SEDATION [None]
  - HYPERTENSION [None]
  - DIZZINESS [None]
  - DELIRIUM [None]
  - TACHYPNOEA [None]
  - CONFUSIONAL STATE [None]
  - TACHYCARDIA [None]
